FAERS Safety Report 4434211-6 (Version None)
Quarter: 2004Q3

REPORT INFORMATION
  Report Type: 
  Country: None (occurrence: None)
  Receive Date: 20040825
  Receipt Date: 20040816
  Transmission Date: 20050211
  Serious: Yes (Life-Threatening, Hospitalization)
  Sender: FDA-Public Use
  Company Number: 2004229099FI

PATIENT
  Age: 72 Year
  Sex: Male

DRUGS (11)
  1. CLINDAMYCIN [Suspect]
     Indication: WOUND INFECTION
     Dosage: ORAL
     Route: 048
     Dates: start: 20040719
  2. DALACIN (CLINDAMYCIN)SOLUTION, STERILE [Suspect]
     Indication: WOUND INFECTION
     Dosage: 1800 MG, DAILY, IV
     Route: 042
     Dates: start: 20040804, end: 20040805
  3. AMARYL [Concomitant]
  4. MADOPAR (BESERAZIDE HYDROCHLORIDE) [Concomitant]
  5. SELEGELINE HYDROCHLORIDE [Concomitant]
  6. SEROQUEL [Concomitant]
  7. PERMAX [Concomitant]
  8. SOMAC (PANTOPRAZOLE SODIUM) [Concomitant]
  9. SPARTOCINE (FERROUS ASPARTATE) [Concomitant]
  10. BURANA [Concomitant]
  11. TAVANIC (LEVOFLOXACIN) [Concomitant]

REACTIONS (6)
  - CLOSTRIDIAL INFECTION [None]
  - DIALYSIS [None]
  - PYREXIA [None]
  - RENAL FAILURE ACUTE [None]
  - SEPTIC SHOCK [None]
  - TOXIC DILATATION OF COLON [None]
